FAERS Safety Report 4705227-7 (Version None)
Quarter: 2005Q2

REPORT INFORMATION
  Report Type: 
  Country: None (occurrence: None)
  Receive Date: 20050629
  Receipt Date: 20050614
  Transmission Date: 20051028
  Serious: Yes (Other)
  Sender: FDA-Public Use
  Company Number: 2005078344

PATIENT
  Age: 48 Year
  Sex: Male
  Weight: 95.2554 kg

DRUGS (2)
  1. NATURAL CITRUS LISTERINE (MENTHOL, METHYL SALICYLATE, EUCALYPTOL, THYM [Suspect]
     Indication: HALITOSIS
     Dosage: ONE CAPFUL QD, ORAL
     Route: 048
     Dates: start: 20050401, end: 20050422
  2. LEVOTHYROXINE SODIUM [Concomitant]

REACTIONS (3)
  - BLOOD ALCOHOL INCREASED [None]
  - DRUG ADMINISTRATION ERROR [None]
  - ROAD TRAFFIC ACCIDENT [None]
